FAERS Safety Report 8338665 (Version 2)
Quarter: 2013Q1

REPORT INFORMATION
  Report Type: Spontaneous
  Country: US (occurrence: US)
  Receive Date: 20120117
  Receipt Date: 20130322
  Transmission Date: 20140127
  Serious: Yes (Other)
  Sender: FDA-Public Use
  Company Number: US-BRISTOL-MYERS SQUIBB COMPANY-16345274

PATIENT
  Age: 56 Year
  Sex: Female

DRUGS (1)
  1. ERBITUX [Suspect]
     Dosage: HAS BEEN WITH 70 DAYS?PLANS TO RESTART
     Dates: start: 201104

REACTIONS (4)
  - Device related infection [Unknown]
  - Vertigo [Unknown]
  - Spinal cord compression [Unknown]
  - Neuropathy peripheral [Unknown]
